FAERS Safety Report 25190406 (Version 1)
Quarter: 2025Q2

REPORT INFORMATION
  Report Type: Other
  Country: US (occurrence: US)
  Receive Date: 20250411
  Receipt Date: 20250411
  Transmission Date: 20250717
  Serious: Yes (Life-Threatening, Other)
  Sender: EMD SERONO INC
  Company Number: US-Merck Healthcare KGaA-2025016858

PATIENT
  Age: 57 Year
  Sex: Male

DRUGS (1)
  1. METFORMIN [Suspect]
     Active Substance: METFORMIN HYDROCHLORIDE
     Indication: Diabetes mellitus

REACTIONS (5)
  - Septic shock [Unknown]
  - Renal failure [Unknown]
  - Metabolic acidosis [Unknown]
  - Liver function test abnormal [Unknown]
  - Cholecystitis [Unknown]
